FAERS Safety Report 23337976 (Version 1)
Quarter: 2023Q4

REPORT INFORMATION
  Report Type: Spontaneous
  Country: US (occurrence: None)
  Receive Date: 20231222
  Receipt Date: 20231222
  Transmission Date: 20240110
  Serious: No
  Sender: FDA-Public Use
  Company Number: None

PATIENT
  Age: 38 Year
  Sex: Male
  Weight: 83.25 kg

DRUGS (3)
  1. HUMIRA [Suspect]
     Active Substance: ADALIMUMAB
     Indication: Crohn^s disease
     Dosage: OTHER FREQUENCY : EVERY 14 DAYS;?
     Route: 058
     Dates: start: 20220106, end: 20231216
  2. GABAPENTIN [Concomitant]
     Active Substance: GABAPENTIN
     Dates: start: 20211208
  3. TRAMADOL [Concomitant]
     Active Substance: TRAMADOL\TRAMADOL HYDROCHLORIDE
     Dates: start: 20211208

REACTIONS (3)
  - Abdominal pain upper [None]
  - Therapy cessation [None]
  - Therapy change [None]

NARRATIVE: CASE EVENT DATE: 20231215
